FAERS Safety Report 5163054-3 (Version None)
Quarter: 2006Q4

REPORT INFORMATION
  Report Type: 
  Country: None (occurrence: None)
  Receive Date: 20061201
  Receipt Date: 20061024
  Transmission Date: 20070319
  Serious: Yes (Hospitalization)
  Sender: FDA-Public Use
  Company Number: JP-BOEHRINGER INGELHEIM PHARMACEUTICALS, INC.-2006-BP-12518NB

PATIENT
  Sex: Male
  Weight: 62.7 kg

DRUGS (3)
  1. MICARDIS [Suspect]
     Indication: ESSENTIAL HYPERTENSION
     Route: 048
     Dates: start: 20040218, end: 20040618
  2. AMARYL [Concomitant]
     Indication: DIABETES MELLITUS
     Route: 048
     Dates: start: 20040221, end: 20040703
  3. LIPANTIL [Concomitant]
     Indication: HYPERLIPIDAEMIA
     Route: 048
     Dates: start: 20040701, end: 20040703

REACTIONS (3)
  - CONDITION AGGRAVATED [None]
  - DIABETIC RETINOPATHY [None]
  - HYPERURICAEMIA [None]
